FAERS Safety Report 10151945 (Version 2)
Quarter: 2014Q2

REPORT INFORMATION
  Report Type: Report from Study
  Country: RU (occurrence: RU)
  Receive Date: 20140505
  Receipt Date: 20140619
  Transmission Date: 20141212
  Serious: Yes (Death, Hospitalization, Disabling)
  Sender: FDA-Public Use
  Company Number: RU-JNJFOC-20140500907

PATIENT
  Sex: Female
  Weight: 70 kg

DRUGS (2)
  1. XARELTO [Suspect]
     Indication: ATRIAL FIBRILLATION
     Route: 048
  2. XARELTO [Suspect]
     Indication: CEREBROVASCULAR ACCIDENT PROPHYLAXIS
     Route: 048

REACTIONS (1)
  - Ischaemic stroke [Fatal]
